FAERS Safety Report 7688311-8 (Version None)
Quarter: 2011Q3

REPORT INFORMATION
  Report Type: 
  Country: None (occurrence: None)
  Receive Date: 20110817
  Receipt Date: 20110811
  Transmission Date: 20111222
  Serious: Yes (Hospitalization)
  Sender: FDA-Public Use
  Company Number: DE-SANOFI-AVENTIS-2011SA005559

PATIENT
  Age: 62 Year
  Sex: Female
  Weight: 56 kg

DRUGS (8)
  1. DOCETAXEL [Suspect]
     Route: 041
  2. PANTOPRAZOLE [Concomitant]
     Indication: PAIN
     Route: 048
  3. DOCETAXEL [Suspect]
     Indication: BREAST CANCER
     Route: 041
     Dates: start: 20101015, end: 20101015
  4. CITALOPRAM HYDROBROMIDE [Concomitant]
     Indication: DEPRESSION
     Route: 048
  5. ALENDRONIC ACID [Concomitant]
     Indication: OSTEOPOROSIS
     Route: 065
  6. VITAMIN D [Concomitant]
     Indication: PROPHYLAXIS
     Route: 048
  7. GRANISETRON [Concomitant]
     Indication: PROPHYLAXIS
     Route: 042
     Dates: start: 20101015, end: 20101015
  8. DEXAMETHASONE [Concomitant]
     Indication: PROPHYLAXIS
     Route: 042
     Dates: start: 20101015, end: 20101015

REACTIONS (1)
  - DEPRESSION [None]
